FAERS Safety Report 18760917 (Version 8)
Quarter: 2021Q3

REPORT INFORMATION
  Report Type: Report from Study
  Country: DE (occurrence: DE)
  Receive Date: 20210119
  Receipt Date: 20210709
  Transmission Date: 20211014
  Serious: Yes (Hospitalization)
  Sender: FDA-Public Use
  Company Number: DE-INCYTE CORPORATION-2021IN000341

PATIENT

DRUGS (3)
  1. ASPIRIN. [Concomitant]
     Active Substance: ASPIRIN
     Indication: PRODUCT USED FOR UNKNOWN INDICATION
     Dosage: 100, QD (IN THE MORNING (1?0?0))
     Route: 048
  2. INCB018424 [Suspect]
     Active Substance: RUXOLITINIB
     Indication: PRIMARY MYELOFIBROSIS
     Dosage: 20 MG, PER DAY
     Route: 048
     Dates: start: 20181204
  3. INCB018424 [Suspect]
     Active Substance: RUXOLITINIB
     Dosage: 10 MG, PER DAY
     Route: 048
     Dates: start: 20200603

REACTIONS (4)
  - Anaemia [Recovered/Resolved]
  - Salivary gland mucocoele [Unknown]
  - COVID-19 [Recovered/Resolved]
  - Paranasal cyst [Recovered/Resolved]

NARRATIVE: CASE EVENT DATE: 20200301
